FAERS Safety Report 6562791-3 (Version None)
Quarter: 2010Q1

REPORT INFORMATION
  Report Type: 
  Country: None (occurrence: None)
  Receive Date: 20100130
  Receipt Date: 20091120
  Transmission Date: 20100710
  Serious: No
  Sender: FDA-Public Use
  Company Number: US-ABBOTT-09P-163-0610707-00

PATIENT
  Sex: Male
  Weight: 52.21 kg

DRUGS (5)
  1. HUMIRA [Suspect]
     Indication: CROHN'S DISEASE
     Dates: start: 20080301
  2. PENTASA [Concomitant]
     Indication: CROHN'S DISEASE
  3. DICYCLOMINE [Concomitant]
     Indication: CROHN'S DISEASE
  4. ISOTAMINE [Concomitant]
     Indication: DIARRHOEA
  5. IMODIUM [Concomitant]
     Indication: DIARRHOEA

REACTIONS (5)
  - CROHN'S DISEASE [None]
  - DRUG DOSE OMISSION [None]
  - ORAL PAIN [None]
  - RASH [None]
  - SENSORY DISTURBANCE [None]
